FAERS Safety Report 18666836 (Version 1)
Quarter: 2020Q4

REPORT INFORMATION
  Report Type: Spontaneous
  Country: DE (occurrence: DE)
  Receive Date: 20201227
  Receipt Date: 20201227
  Transmission Date: 20210114
  Serious: Yes (Hospitalization)
  Sender: FDA-Public Use
  Company Number: DE-RECORDATI RARE DISEASES-2103498

PATIENT
  Age: 7 Year
  Sex: Female
  Weight: 34 kg

DRUGS (8)
  1. COLECALCIFEROL [Suspect]
     Active Substance: CHOLECALCIFEROL
     Route: 048
  2. SODIUM PHOSPHATE [Suspect]
     Active Substance: SODIUM PHOSPHATE
     Route: 048
  3. CYSTADROPS [Suspect]
     Active Substance: CYSTEAMINE HYDROCHLORIDE
     Indication: CYSTINOSIS
     Route: 047
  4. OMEPRAZOLE. [Suspect]
     Active Substance: OMEPRAZOLE
     Route: 048
  5. MERCAPTAMINE BITARTRATE [Suspect]
     Active Substance: CYSTEAMINE
     Route: 048
  6. NITROFURANTOIN. [Suspect]
     Active Substance: NITROFURANTOIN
  7. SODIUM HYDROGEN CARBONATE [Suspect]
     Active Substance: SODIUM BICARBONATE
     Route: 048
  8. POTASSIUM DIHYDROGEN PHOSPHATE [Suspect]
     Active Substance: POTASSIUM PHOSPHATE, MONOBASIC
     Route: 048

REACTIONS (3)
  - Vomiting [Unknown]
  - Treatment noncompliance [Unknown]
  - Product administration error [Unknown]

NARRATIVE: CASE EVENT DATE: 20190807
